FAERS Safety Report 9258964 (Version 1)
Quarter: 2013Q2

REPORT INFORMATION
  Report Type: Spontaneous
  Country: GB (occurrence: GB)
  Receive Date: 20130426
  Receipt Date: 20130426
  Transmission Date: 20140414
  Serious: Yes (Other)
  Sender: FDA-Public Use
  Company Number: GB-TEVA-400579ISR

PATIENT
  Age: 79 Year
  Sex: Male

DRUGS (4)
  1. WARFARIN [Suspect]
  2. AMIODARONE [Concomitant]
     Indication: CARDIAC DISORDER
     Route: 048
  3. LOSARTAN [Concomitant]
     Indication: CARDIAC DISORDER
     Route: 048
  4. SIMVASTATIN [Concomitant]
     Indication: CARDIAC DISORDER
     Route: 048

REACTIONS (7)
  - Haemorrhage [Recovered/Resolved]
  - Local swelling [Recovered/Resolved]
  - Photopsia [Recovered/Resolved]
  - Fatigue [Recovered/Resolved]
  - Asthenia [Recovered/Resolved]
  - Rash [Recovered/Resolved]
  - Chromaturia [Recovered/Resolved]
